FAERS Safety Report 20584569 (Version 1)
Quarter: 2022Q1

REPORT INFORMATION
  Report Type: Report from Study
  Country: US (occurrence: None)
  Receive Date: 20220311
  Receipt Date: 20220311
  Transmission Date: 20220423
  Serious: Yes (Hospitalization)
  Sender: FDA-Public Use
  Company Number: US-ROCHE-3039075

PATIENT
  Sex: Male
  Weight: 86.6 kg

DRUGS (2)
  1. VEMURAFENIB [Suspect]
     Active Substance: VEMURAFENIB
     Indication: Craniopharyngioma
     Dosage: PATIENT ONLY TOOK 960 MG LAST DAY.
     Route: 065
     Dates: start: 20220203, end: 20220214
  2. COBIMETINIB [Suspect]
     Active Substance: COBIMETINIB
     Indication: Craniopharyngioma
     Dosage: DOSE FOR COBIMETINIB WAS HELD DUE TO HYPERTENSION ON
     Route: 065
     Dates: end: 20220126

REACTIONS (5)
  - Oedema peripheral [Recovering/Resolving]
  - Rash maculo-papular [Recovering/Resolving]
  - Dyspnoea [Recovering/Resolving]
  - Pyrexia [Recovering/Resolving]
  - Tumour pain [Recovering/Resolving]

NARRATIVE: CASE EVENT DATE: 20220212
